FAERS Safety Report 9871728 (Version 1)
Quarter: 2014Q1

REPORT INFORMATION
  Report Type: Spontaneous
  Country: US (occurrence: US)
  Receive Date: 20140205
  Receipt Date: 20140205
  Transmission Date: 20141002
  Serious: No
  Sender: FDA-Public Use
  Company Number: US-AMGEN-USASP2013025115

PATIENT
  Age: 73 Year
  Sex: Female

DRUGS (5)
  1. NEULASTA [Suspect]
     Indication: PRODUCT USED FOR UNKNOWN INDICATION
     Dosage: 6 MG, UNK
     Dates: start: 20130202
  2. 5-FLUOROURACIL                     /00098801/ [Concomitant]
     Indication: BREAST CANCER
     Dosage: UNK
  3. DOXORUBICIN [Concomitant]
     Indication: BREAST CANCER
     Dosage: UNK
  4. CYCLOPHOSPHAMIDE [Concomitant]
     Indication: BREAST CANCER
     Dosage: UNK
  5. WARFARIN [Concomitant]
     Dosage: UNK

REACTIONS (3)
  - Back pain [Unknown]
  - Dyspnoea exertional [Unknown]
  - Fatigue [Unknown]
